FAERS Safety Report 15934634 (Version 1)
Quarter: 2019Q1

REPORT INFORMATION
  Report Type: Spontaneous
  Country: US (occurrence: US)
  Receive Date: 20190207
  Receipt Date: 20190207
  Transmission Date: 20190417
  Serious: No
  Sender: FDA-Public Use
  Company Number: US-MYLANLABS-2019M1005200

PATIENT

DRUGS (3)
  1. LIDOCAINE PATCH [Suspect]
     Active Substance: LIDOCAINE
     Indication: NECK PAIN
     Route: 003
  2. LIDOCAINE PATCH [Suspect]
     Active Substance: LIDOCAINE
     Indication: ANKYLOSING SPONDYLITIS
  3. LIDOCAINE PATCH [Suspect]
     Active Substance: LIDOCAINE
     Indication: BACK PAIN

REACTIONS (5)
  - Musculoskeletal discomfort [Not Recovered/Not Resolved]
  - Product quality issue [Not Recovered/Not Resolved]
  - Pain [Not Recovered/Not Resolved]
  - Product adhesion issue [Not Recovered/Not Resolved]
  - Off label use [Not Recovered/Not Resolved]
